FAERS Safety Report 18322820 (Version 2)
Quarter: 2020Q4

REPORT INFORMATION
  Report Type: Spontaneous
  Country: US (occurrence: US)
  Receive Date: 20200929
  Receipt Date: 20201005
  Transmission Date: 20210113
  Serious: No
  Sender: FDA-Public Use
  Company Number: US-TEVA-2020-US-1833183

PATIENT
  Age: 13 Year
  Sex: Male

DRUGS (1)
  1. FLUOXETINE HCL [Suspect]
     Active Substance: FLUOXETINE HYDROCHLORIDE
     Indication: ANXIETY
     Route: 065
     Dates: start: 2020

REACTIONS (7)
  - Product quality issue [Unknown]
  - Anger [Unknown]
  - Drug ineffective [Unknown]
  - Product contamination [Unknown]
  - Agitation [Unknown]
  - Product use in unapproved indication [Unknown]
  - Anxiety [Unknown]

NARRATIVE: CASE EVENT DATE: 2020
